FAERS Safety Report 4998068-7 (Version None)
Quarter: 2006Q2

REPORT INFORMATION
  Report Type: 
  Country: None (occurrence: None)
  Receive Date: 20060510
  Receipt Date: 20060420
  Transmission Date: 20061013
  Serious: Yes (Other)
  Sender: FDA-Public Use
  Company Number: NO-MERCK-0604NOR00007

PATIENT
  Sex: Female

DRUGS (2)
  1. VIOXX [Suspect]
     Route: 048
     Dates: end: 20041001
  2. ESOMEPRAZOLE MAGNESIUM [Suspect]
     Route: 048
     Dates: start: 20030101

REACTIONS (1)
  - BLINDNESS [None]
